FAERS Safety Report 8591210-0 (Version None)
Quarter: 2012Q3

REPORT INFORMATION
  Report Type: 
  Country: None (occurrence: None)
  Receive Date: 20120813
  Receipt Date: 20120810
  Transmission Date: 20120928
  Serious: Yes (Death, Hospitalization)
  Sender: FDA-Public Use
  Company Number: PL-ROCHE-1100944

PATIENT
  Sex: Female

DRUGS (1)
  1. MIRCERA [Suspect]
     Indication: ANAEMIA
     Route: 042
     Dates: start: 20120127, end: 20120601

REACTIONS (2)
  - HIP FRACTURE [None]
  - CARDIAC FAILURE [None]
